FAERS Safety Report 12469857 (Version 1)
Quarter: 2016Q2

REPORT INFORMATION
  Report Type: Spontaneous
  Country: FR (occurrence: FR)
  Receive Date: 20160615
  Receipt Date: 20160615
  Transmission Date: 20160815
  Serious: Yes (Hospitalization)
  Sender: FDA-Public Use
  Company Number: FR-ASTRAZENECA-2016SE64382

PATIENT
  Age: 20457 Day
  Sex: Female

DRUGS (4)
  1. RAMIPRIL. [Suspect]
     Active Substance: RAMIPRIL
     Dosage: 2 ENTIRE BOXES, ONCE/SINGLE ADMINISTRATION
     Route: 048
     Dates: start: 20160525, end: 20160525
  2. BRILIQUE [Suspect]
     Active Substance: TICAGRELOR
     Dosage: 6.0DF ONCE/SINGLE ADMINISTRATION
     Route: 048
     Dates: start: 20160525, end: 20160525
  3. AMLOR [Concomitant]
     Active Substance: AMLODIPINE BESYLATE
  4. BISOPROLOL [Suspect]
     Active Substance: BISOPROLOL
     Dosage: 1 ENTIRE BOX, ONCE/SINGLE ADMINISTRATION
     Route: 048
     Dates: start: 20160525, end: 20160525

REACTIONS (4)
  - Suicide attempt [Recovered/Resolved]
  - Bradycardia [Recovered/Resolved]
  - Electrocardiogram T wave amplitude decreased [None]
  - Poisoning deliberate [Recovered/Resolved]

NARRATIVE: CASE EVENT DATE: 20160525
